FAERS Safety Report 18227010 (Version 3)
Quarter: 2020Q3

REPORT INFORMATION
  Report Type: Spontaneous
  Country: TR (occurrence: TR)
  Receive Date: 20200903
  Receipt Date: 20200930
  Transmission Date: 20201103
  Serious: Yes (Hospitalization, Other)
  Sender: FDA-Public Use
  Company Number: TR-PFIZER INC-2020340746

PATIENT
  Age: 4 Year
  Sex: Male

DRUGS (1)
  1. ELELYSO [Suspect]
     Active Substance: TALIGLUCERASE ALFA
     Indication: GAUCHER^S DISEASE TYPE III
     Dosage: 60 IU ONCE EVERY 2 WEEKS
     Dates: end: 202007

REACTIONS (8)
  - Brain death [Unknown]
  - Off label use [Unknown]
  - Cardiac arrest [Unknown]
  - Pneumonia aspiration [Unknown]
  - Product use issue [Unknown]
  - Respiratory arrest [Recovered/Resolved]
  - Unresponsive to stimuli [Unknown]
  - Nervous system disorder [Unknown]

NARRATIVE: CASE EVENT DATE: 2019
